FAERS Safety Report 10075794 (Version 2)
Quarter: 2014Q2

REPORT INFORMATION
  Report Type: Report from Study
  Country: US (occurrence: US)
  Receive Date: 20140414
  Receipt Date: 20140414
  Transmission Date: 20141212
  Serious: Yes (Hospitalization)
  Sender: FDA-Public Use
  Company Number: PHEH2013US023234

PATIENT
  Sex: Female

DRUGS (2)
  1. AFINITOR [Suspect]
     Indication: BENIGN NEOPLASM OF ISLETS OF LANGERHANS
     Dosage: 10 MG, QD
     Route: 048
     Dates: start: 2012
  2. AFINITOR [Suspect]
     Dosage: 10 MG, QD
     Route: 048
     Dates: start: 20130610

REACTIONS (10)
  - Cardiac valve disease [Recovering/Resolving]
  - Tremor [Recovering/Resolving]
  - Feeling abnormal [Recovering/Resolving]
  - Ingrowing nail [Unknown]
  - Cheilitis [Unknown]
  - Furuncle [Unknown]
  - Rash [Unknown]
  - Blood glucose increased [Unknown]
  - Fatigue [Unknown]
  - Stomatitis [Unknown]
